FAERS Safety Report 6645687-8 (Version None)
Quarter: 2010Q1

REPORT INFORMATION
  Report Type: 
  Country: None (occurrence: None)
  Receive Date: 20100323
  Receipt Date: 20100316
  Transmission Date: 20100710
  Serious: Yes (Hospitalization)
  Sender: FDA-Public Use
  Company Number: US-SANOFI-AVENTIS-2010SA015422

PATIENT

DRUGS (3)
  1. APIDRA [Suspect]
     Dosage: DOSE:54 UNIT(S)
     Route: 058
  2. APIDRA [Suspect]
     Route: 058
  3. LANTUS [Suspect]
     Dosage: DOSE:54 UNIT(S)
     Route: 058

REACTIONS (3)
  - CONDITION AGGRAVATED [None]
  - RENAL FAILURE [None]
  - WRONG DRUG ADMINISTERED [None]
